FAERS Safety Report 14581874 (Version 4)
Quarter: 2018Q1

REPORT INFORMATION
  Report Type: Spontaneous
  Country: RO (occurrence: RO)
  Receive Date: 20180228
  Receipt Date: 20180319
  Transmission Date: 20180509
  Serious: Yes (Hospitalization, Other)
  Sender: FDA-Public Use
  Company Number: RO-SA-2018SA051602

PATIENT
  Age: 64 Year
  Sex: Female

DRUGS (12)
  1. SULFASALAZINE. [Suspect]
     Active Substance: SULFASALAZINE
     Indication: RHEUMATOID ARTHRITIS
     Route: 065
  2. PREDNISONE. [Suspect]
     Active Substance: PREDNISONE
     Indication: RHEUMATOID ARTHRITIS
     Route: 065
     Dates: end: 201307
  3. SULFASALAZINE. [Suspect]
     Active Substance: SULFASALAZINE
     Indication: RHEUMATOID ARTHRITIS
     Route: 065
     Dates: start: 2000
  4. DICLOFENAC SALT NOT SPECIFIED [Suspect]
     Active Substance: DICLOFENAC
     Indication: RHEUMATOID ARTHRITIS
     Route: 065
     Dates: start: 201307
  5. CLOPIDOGREL BISULFATE. [Suspect]
     Active Substance: CLOPIDOGREL BISULFATE
     Indication: ANTIPLATELET THERAPY
     Route: 065
  6. SULFASALAZINE. [Suspect]
     Active Substance: SULFASALAZINE
     Indication: RHEUMATOID ARTHRITIS
     Route: 065
     Dates: end: 201307
  7. SULFASALAZINE. [Suspect]
     Active Substance: SULFASALAZINE
     Indication: RHEUMATOID ARTHRITIS
     Route: 065
  8. DICLOFENAC SALT NOT SPECIFIED [Suspect]
     Active Substance: DICLOFENAC
     Indication: ARTHRALGIA
     Route: 065
     Dates: start: 201307
  9. HYDROXYCHLOROQUINE [Suspect]
     Active Substance: HYDROXYCHLOROQUINE
     Indication: RHEUMATOID ARTHRITIS
     Route: 065
  10. PREDNISONE. [Suspect]
     Active Substance: PREDNISONE
     Indication: RHEUMATOID ARTHRITIS
     Route: 065
     Dates: start: 2000
  11. ASPIRIN. [Suspect]
     Active Substance: ASPIRIN
     Indication: ANTIPLATELET THERAPY
     Route: 065
  12. METHOTREXATE. [Suspect]
     Active Substance: METHOTREXATE
     Indication: RHEUMATOID ARTHRITIS
     Route: 065
     Dates: start: 2000, end: 201307

REACTIONS (10)
  - Angina pectoris [Unknown]
  - Treatment noncompliance [Unknown]
  - Coronary artery disease [Unknown]
  - Rheumatoid arthritis [Recovering/Resolving]
  - Acute myocardial infarction [Recovering/Resolving]
  - Intentional product misuse [Unknown]
  - Vascular stent thrombosis [Recovered/Resolved]
  - Drug ineffective [Unknown]
  - Intentional dose omission [Unknown]
  - Drug intolerance [Unknown]

NARRATIVE: CASE EVENT DATE: 2014
